FAERS Safety Report 10754842 (Version 1)
Quarter: 2015Q1

REPORT INFORMATION
  Report Type: Spontaneous
  Country: FR (occurrence: FR)
  Receive Date: 20150202
  Receipt Date: 20150202
  Transmission Date: 20150721
  Serious: Yes (Hospitalization)
  Sender: FDA-Public Use
  Company Number: FR-009507513-1501FRA012132

PATIENT
  Age: 40 Year
  Sex: Female

DRUGS (7)
  1. EMEND [Suspect]
     Active Substance: APREPITANT
     Dosage: UNK
     Route: 048
     Dates: start: 20141211, end: 20141212
  2. PACLITAXEL. [Suspect]
     Active Substance: PACLITAXEL
     Dosage: UNK
     Route: 048
     Dates: start: 20141210, end: 20141210
  3. CARBOPLATIN. [Suspect]
     Active Substance: CARBOPLATIN
     Dosage: UNK
     Route: 042
     Dates: start: 20141210, end: 20141210
  4. CIPROFLOXACIN. [Suspect]
     Active Substance: CIPROFLOXACIN
     Dosage: UNK
     Route: 065
     Dates: start: 20141222, end: 20141227
  5. INNOHEP [Suspect]
     Active Substance: TINZAPARIN SODIUM
     Dosage: UNK
     Route: 058
     Dates: start: 20141216
  6. LOVENOX [Suspect]
     Active Substance: ENOXAPARIN SODIUM
     Dosage: UNK
     Route: 058
     Dates: start: 201412
  7. GRANOCYTE [Suspect]
     Active Substance: LENOGRASTIM
     Dosage: UNK
     Route: 058
     Dates: start: 20141211, end: 20141214

REACTIONS (1)
  - Cutaneous vasculitis [Not Recovered/Not Resolved]

NARRATIVE: CASE EVENT DATE: 20141227
